FAERS Safety Report 19037610 (Version 1)
Quarter: 2021Q1

REPORT INFORMATION
  Report Type: Report from Study
  Country: TR (occurrence: TR)
  Receive Date: 20210322
  Receipt Date: 20210322
  Transmission Date: 20210420
  Serious: Yes (Death)
  Sender: FDA-Public Use
  Company Number: TR-PFIZER INC-2021301218

PATIENT
  Age: 21 Day
  Sex: Male

DRUGS (2)
  1. CARBOPLATIN. [Suspect]
     Active Substance: CARBOPLATIN
     Indication: FIBROSARCOMA
     Dosage: 6.6 MG/KG, CYCLIC (DAYS 1?3)
  2. ETOPOSIDE. [Suspect]
     Active Substance: ETOPOSIDE
     Indication: FIBROSARCOMA
     Dosage: 5 MG/KG, CYCLIC, (DAYS 1?3)

REACTIONS (1)
  - Febrile neutropenia [Fatal]
